FAERS Safety Report 7203358-3 (Version None)
Quarter: 2010Q4

REPORT INFORMATION
  Report Type: 
  Country: None (occurrence: None)
  Receive Date: 20101215
  Receipt Date: 20101207
  Transmission Date: 20110411
  Serious: Yes (Hospitalization)
  Sender: FDA-Public Use
  Company Number: 2010SP060555

PATIENT
  Sex: Male

DRUGS (1)
  1. TRIDERM [Suspect]
     Indication: PRODUCT USED FOR UNKNOWN INDICATION
     Dates: start: 20101112, end: 20101114

REACTIONS (3)
  - FOLLICULITIS [None]
  - PRURITUS [None]
  - RASH PUSTULAR [None]
